FAERS Safety Report 5737894-3 (Version None)
Quarter: 2008Q2

REPORT INFORMATION
  Report Type: 
  Country: None (occurrence: None)
  Receive Date: 20080512
  Receipt Date: 20080512
  Transmission Date: 20081010
  Serious: Yes (Hospitalization)
  Sender: FDA-Public Use
  Company Number: None

PATIENT
  Sex: Male
  Weight: 102.5129 kg

DRUGS (2)
  1. LAMICTAL [Suspect]
     Indication: SCHIZOAFFECTIVE DISORDER
     Dosage: 50 MG     QD      PO
     Route: 048
     Dates: start: 20070712, end: 20080318
  2. INVEGA [Suspect]
     Indication: SCHIZOAFFECTIVE DISORDER
     Dosage: 9 MG      QD         PO
     Route: 048
     Dates: start: 20070515, end: 20080326

REACTIONS (1)
  - BLOOD CREATINE PHOSPHOKINASE INCREASED [None]
